FAERS Safety Report 8068275-8 (Version None)
Quarter: 2012Q1

REPORT INFORMATION
  Report Type: 
  Country: None (occurrence: None)
  Receive Date: 20120124
  Receipt Date: 20111007
  Transmission Date: 20120608
  Serious: No
  Sender: FDA-Public Use
  Company Number: US-AMGEN-USASP2011052085

PATIENT
  Age: 66 Year
  Sex: Female

DRUGS (12)
  1. PROLIA [Suspect]
     Indication: OSTEOPOROSIS POSTMENOPAUSAL
     Route: 058
     Dates: start: 20110926
  2. ANTIDEPRESSANTS [Concomitant]
  3. ANXIOLYTICS [Concomitant]
  4. POTASSIUM CHLORIDE [Concomitant]
  5. VOLTAREN [Concomitant]
  6. CYANOCOBALAMIN [Concomitant]
  7. CALTRATE                           /00751519/ [Concomitant]
  8. VAGIFEM [Concomitant]
     Dates: start: 20110101
  9. LEVOTHROID [Concomitant]
  10. HYDROCORTISONE ACETATE [Concomitant]
  11. OMEPRAZOLE [Concomitant]
  12. CETIRIZINE [Concomitant]

REACTIONS (10)
  - HERPES ZOSTER [None]
  - BLOOD PRESSURE INCREASED [None]
  - DIARRHOEA [None]
  - ABDOMINAL PAIN UPPER [None]
  - NAUSEA [None]
  - CONSTIPATION [None]
  - RHEUMATOID ARTHRITIS [None]
  - PAIN [None]
  - FLATULENCE [None]
  - UPPER RESPIRATORY TRACT INFECTION [None]
